FAERS Safety Report 8556423-2 (Version None)
Quarter: 2012Q3

REPORT INFORMATION
  Report Type: 
  Country: None (occurrence: None)
  Receive Date: 20120801
  Receipt Date: 20120727
  Transmission Date: 20120928
  Serious: Yes (Other)
  Sender: FDA-Public Use
  Company Number: PHHY2012CA065376

PATIENT
  Age: 66 Year
  Sex: Female

DRUGS (6)
  1. ADVAIR DISKUS 100/50 [Concomitant]
     Dosage: UNK UKN, UNK
  2. SYNTHROID [Concomitant]
     Dosage: UNK UKN, UNK
  3. FEMARA [Suspect]
     Dosage: 2.5 MG, DAILY
     Route: 048
  4. NASONEX [Concomitant]
     Dosage: UNK UKN, UNK
  5. SINGULAIR [Concomitant]
     Dosage: UNK UKN, UNK
  6. DIOVAN HCT [Concomitant]
     Dosage: UNK UKN, UNK

REACTIONS (5)
  - ASTHMA [None]
  - BREAST CANCER [None]
  - HYPOTHYROIDISM [None]
  - OSTEOPOROSIS [None]
  - HYPERTENSION [None]
